FAERS Safety Report 15027316 (Version 1)
Quarter: 2018Q2

REPORT INFORMATION
  Report Type: Spontaneous
  Country: DE (occurrence: DE)
  Receive Date: 20180619
  Receipt Date: 20180619
  Transmission Date: 20180711
  Serious: Yes (Hospitalization)
  Sender: FDA-Public Use
  Company Number: DE-TEVA-2018-DE-907424

PATIENT
  Age: 86 Year
  Sex: Male

DRUGS (8)
  1. MARCUMAR [Concomitant]
     Active Substance: PHENPROCOUMON
     Dosage: AFTER INR
     Route: 065
  2. DIGITOXIN [Suspect]
     Active Substance: DIGITOXIN
     Dosage: 1-0-0-0
     Route: 065
  3. METOPROLOL. [Suspect]
     Active Substance: METOPROLOL
     Dosage: 1-0-1-0
     Route: 065
  4. FUROSEMIDE. [Concomitant]
     Active Substance: FUROSEMIDE
     Dosage: 1-1-0-0
     Route: 065
  5. MAGNESIUM [Concomitant]
     Active Substance: MAGNESIUM
     Dosage: 1-0-1-0, EFFERVESCENT
     Route: 065
  6. PANTOPRAZOLE [Concomitant]
     Active Substance: PANTOPRAZOLE
     Dosage: 0-0-1-0
     Route: 065
  7. SIMVASTATIN. [Concomitant]
     Active Substance: SIMVASTATIN
     Dosage: 0-0-1-0
     Route: 065
  8. AMIODARONE [Suspect]
     Active Substance: AMIODARONE
     Dosage: 1-0-0-0
     Route: 065

REACTIONS (7)
  - Dizziness [Unknown]
  - Gait inability [Unknown]
  - Nausea [Unknown]
  - Bradycardia [Unknown]
  - Therapeutic drug monitoring analysis not performed [Unknown]
  - Drug prescribing error [Unknown]
  - Asthenia [Unknown]
